FAERS Safety Report 13329163 (Version 1)
Quarter: 2017Q1

REPORT INFORMATION
  Report Type: Spontaneous
  Country: US (occurrence: US)
  Receive Date: 20170313
  Receipt Date: 20170313
  Transmission Date: 20170428
  Serious: Yes (Other)
  Sender: FDA-Public Use
  Company Number: US-009507513-1703USA004908

PATIENT
  Age: 7 Decade
  Sex: Male

DRUGS (1)
  1. MEVACOR [Suspect]
     Active Substance: LOVASTATIN
     Dosage: 20 MG, UNK
     Route: 048

REACTIONS (3)
  - Mitochondrial myopathy [Recovering/Resolving]
  - Myalgia [Recovering/Resolving]
  - Muscular weakness [Recovering/Resolving]
